FAERS Safety Report 5811251-3 (Version None)
Quarter: 2008Q3

REPORT INFORMATION
  Report Type: 
  Country: None (occurrence: None)
  Receive Date: 20080710
  Receipt Date: 20080618
  Transmission Date: 20090109
  Serious: Yes (Other)
  Sender: FDA-Public Use
  Company Number: 000#8#2008-00131

PATIENT
  Age: 76 Year
  Sex: Female

DRUGS (2)
  1. ALPROSTADIL [Suspect]
     Indication: PROCEDURAL HYPOTENSION
     Dosage: INTRAVENOUS DRIP
     Route: 041
  2. NICORANDIL (NICORANDIL) [Concomitant]

REACTIONS (6)
  - BLOOD PRESSURE DECREASED [None]
  - CARDIAC INDEX DECREASED [None]
  - DISEASE COMPLICATION [None]
  - LYMPHOMA [None]
  - MITRAL VALVE DISEASE [None]
  - OXYGEN SATURATION DECREASED [None]
